FAERS Safety Report 13812544 (Version 2)
Quarter: 2018Q1

REPORT INFORMATION
  Report Type: Spontaneous
  Country: US (occurrence: US)
  Receive Date: 20170728
  Receipt Date: 20180123
  Transmission Date: 20180508
  Serious: No
  Sender: FDA-Public Use
  Company Number: US-009507513-1707USA006470

PATIENT
  Age: 8 Year
  Sex: Male
  Weight: 25.4 kg

DRUGS (6)
  1. ASMANEX [Suspect]
     Active Substance: MOMETASONE FUROATE
     Indication: ASTHMA
     Dosage: 1 PUFF DAILY
     Route: 055
     Dates: start: 20160926, end: 201612
  2. ASMANEX [Suspect]
     Active Substance: MOMETASONE FUROATE
     Dosage: 1 PUFF DAILY
     Dates: start: 201612, end: 20170710
  3. PROAIR HFA [Concomitant]
     Active Substance: ALBUTEROL SULFATE
     Dosage: AS NEEDED 1/DAILY
  4. CETIRIZINE HYDROCHLORIDE. [Concomitant]
     Active Substance: CETIRIZINE HYDROCHLORIDE
     Dosage: 1/DAILY
  5. FLUTICASONE. [Concomitant]
     Active Substance: FLUTICASONE
     Dosage: 1/DAILY
  6. ASMANEX [Suspect]
     Active Substance: MOMETASONE FUROATE
     Dosage: 1 PUFF DAILY
     Route: 055
     Dates: start: 201612, end: 20170710

REACTIONS (4)
  - Drug dose omission [Unknown]
  - Lactose intolerance [Unknown]
  - Product container issue [Unknown]
  - Allergic reaction to excipient [Recovering/Resolving]

NARRATIVE: CASE EVENT DATE: 20170605
